FAERS Safety Report 24692946 (Version 2)
Quarter: 2025Q2

REPORT INFORMATION
  Report Type: Spontaneous
  Country: US (occurrence: US)
  Receive Date: 20241203
  Receipt Date: 20250415
  Transmission Date: 20250717
  Serious: Yes (Life-Threatening, Hospitalization)
  Sender: TEVA
  Company Number: US-TEVA-VS-3269841

PATIENT
  Age: 34 Year
  Sex: Male

DRUGS (1)
  1. AMLODIPINE [Suspect]
     Active Substance: AMLODIPINE BESYLATE
     Indication: Product used for unknown indication
     Route: 065

REACTIONS (6)
  - Hypotension [Recovered/Resolved]
  - Metabolic acidosis [Recovered/Resolved]
  - Acute kidney injury [Recovered/Resolved]
  - Unresponsive to stimuli [Recovered/Resolved]
  - Overdose [Recovered/Resolved]
  - Shock [Recovered/Resolved]
